FAERS Safety Report 9009737 (Version 1)
Quarter: 2013Q1

REPORT INFORMATION
  Report Type: Spontaneous
  Country: US (occurrence: US)
  Receive Date: 20130110
  Receipt Date: 20130110
  Transmission Date: 20140127
  Serious: Yes (Hospitalization, Other)
  Sender: FDA-Public Use
  Company Number: US-MYLANLABS-2013S1000255

PATIENT
  Age: 63 Year
  Sex: Female
  Weight: 106 kg

DRUGS (7)
  1. LOVENOX [Suspect]
     Dates: start: 2012
  2. LYRICA [Suspect]
     Indication: NEUROPATHY PERIPHERAL
     Dates: start: 201203, end: 201204
  3. AMITRIPTYLINE [Suspect]
     Indication: SLEEP DISORDER
     Dates: start: 2012
  4. ANTIBIOTICS [Suspect]
     Dates: start: 2012, end: 2012
  5. LEVOFLOXACIN [Suspect]
     Dates: start: 2012
  6. EPOETIN ALFA [Suspect]
  7. METFORMIN [Concomitant]

REACTIONS (19)
  - Lung infection [Not Recovered/Not Resolved]
  - Kidney infection [Not Recovered/Not Resolved]
  - Dehydration [Not Recovered/Not Resolved]
  - Cerebrovascular accident [Not Recovered/Not Resolved]
  - Heart rate increased [Not Recovered/Not Resolved]
  - Atrial fibrillation [Not Recovered/Not Resolved]
  - Iron deficiency [Not Recovered/Not Resolved]
  - Dyspnoea [Not Recovered/Not Resolved]
  - Syncope [Not Recovered/Not Resolved]
  - Arthropathy [Not Recovered/Not Resolved]
  - Amnesia [Not Recovered/Not Resolved]
  - Infection [Not Recovered/Not Resolved]
  - Pneumonia aspiration [Not Recovered/Not Resolved]
  - Muscle atrophy [Not Recovered/Not Resolved]
  - Blood glucose decreased [Not Recovered/Not Resolved]
  - Somnolence [Not Recovered/Not Resolved]
  - Dizziness [Not Recovered/Not Resolved]
  - Injection site haemorrhage [Not Recovered/Not Resolved]
  - Injection site mass [Not Recovered/Not Resolved]
